FAERS Safety Report 12668651 (Version 1)
Quarter: 2016Q3

REPORT INFORMATION
  Report Type: Spontaneous
  Country: AU (occurrence: AU)
  Receive Date: 20160819
  Receipt Date: 20160819
  Transmission Date: 20161109
  Serious: Yes (Other)
  Sender: FDA-Public Use
  Company Number: AU-ROCHE-1813070

PATIENT
  Age: 47 Year
  Sex: Female

DRUGS (13)
  1. HERCEPTIN [Suspect]
     Active Substance: TRASTUZUMAB
     Route: 065
     Dates: start: 20130528
  2. KRILL OIL [Concomitant]
     Active Substance: DIETARY SUPPLEMENT
  3. LUTIMAX [Concomitant]
  4. ASPARAGUS EXTRACT [Concomitant]
  5. CURCUMIN [Concomitant]
     Active Substance: CURCUMIN
  6. XELODA [Suspect]
     Active Substance: CAPECITABINE
     Indication: BREAST CANCER METASTATIC
     Dosage: FOR TWO WEEKS WITH ONE WEEK BREAK
     Route: 065
     Dates: start: 20130130, end: 20130501
  7. HERCEPTIN [Suspect]
     Active Substance: TRASTUZUMAB
     Dosage: TWICE MONTHLY
     Route: 065
     Dates: start: 201306, end: 201405
  8. SULFUR. [Concomitant]
     Active Substance: SULFUR
  9. KADCYLA [Suspect]
     Active Substance: ADO-TRASTUZUMAB EMTANSINE
     Indication: BREAST CANCER METASTATIC
     Dosage: TYPICALLY FOR 9-12 MONTHS
     Route: 042
     Dates: start: 201606
  10. HERCEPTIN [Suspect]
     Active Substance: TRASTUZUMAB
     Indication: BREAST CANCER METASTATIC
     Route: 065
     Dates: start: 20130507
  11. HERCEPTIN [Suspect]
     Active Substance: TRASTUZUMAB
     Route: 065
     Dates: start: 20130618
  12. VITAMIN D3 [Concomitant]
     Active Substance: CHOLECALCIFEROL
  13. PAWPAW [Concomitant]

REACTIONS (2)
  - Intestinal haemorrhage [Unknown]
  - Off label use [Unknown]
